FAERS Safety Report 21662237 (Version 1)
Quarter: 2022Q4

REPORT INFORMATION
  Report Type: Spontaneous
  Country: US (occurrence: US)
  Receive Date: 20221130
  Receipt Date: 20221130
  Transmission Date: 20230113
  Serious: Yes (Hospitalization)
  Sender: FDA-Public Use
  Company Number: US-SA-SAC20221128001213

PATIENT
  Age: 72 Year
  Sex: Male
  Weight: 85.4 kg

DRUGS (1)
  1. CAPRELSA [Suspect]
     Active Substance: VANDETANIB
     Indication: Thyroid cancer
     Dosage: 200 MG, QD
     Route: 048
     Dates: start: 20220423

REACTIONS (5)
  - Skin exfoliation [Unknown]
  - Skin swelling [Unknown]
  - Diarrhoea [Unknown]
  - Colostomy [Unknown]
  - Rash macular [Unknown]
